FAERS Safety Report 17881511 (Version 1)
Quarter: 2020Q2

REPORT INFORMATION
  Report Type: Spontaneous
  Country: US (occurrence: US)
  Receive Date: 20200610
  Receipt Date: 20200610
  Transmission Date: 20200714
  Serious: No
  Sender: FDA-Public Use
  Company Number: US-COLLEGIUM PHARMACEUTICAL, INC.-2020CGM00022

PATIENT
  Age: 70 Year
  Sex: Female
  Weight: 81.09 kg

DRUGS (3)
  1. XTAMPZA ER [Suspect]
     Active Substance: OXYCODONE
     Indication: SPINAL FUSION SURGERY
  2. XTAMPZA ER [Suspect]
     Active Substance: OXYCODONE
     Indication: RADICULOPATHY
     Dosage: 9 MG, 2X/DAY
     Route: 048
     Dates: start: 20191129, end: 20191206
  3. PERCOCET [Concomitant]
     Active Substance: ACETAMINOPHEN\OXYCODONE HYDROCHLORIDE
     Dosage: 10 MG, 4X/DAY
     Route: 048

REACTIONS (1)
  - Oedema peripheral [Recovered/Resolved]

NARRATIVE: CASE EVENT DATE: 2019
